FAERS Safety Report 5652699-X (Version None)
Quarter: 2008Q1

REPORT INFORMATION
  Report Type: 
  Country: None (occurrence: None)
  Receive Date: 20080305
  Receipt Date: 20080305
  Transmission Date: 20080703
  Serious: Yes (Hospitalization)
  Sender: FDA-Public Use
  Company Number: None

PATIENT
  Age: 60 Year
  Sex: Male

DRUGS (2)
  1. OXYCODONE AND ACETAMINOPHEN [Suspect]
     Dosage: 1 OR 2TAB QID  PO
     Route: 048
     Dates: start: 20011012
  2. DIAZEPAM [Suspect]
     Dosage: 10MG QID PO
     Route: 048
     Dates: start: 20030828

REACTIONS (1)
  - SEDATION [None]
